FAERS Safety Report 20821965 (Version 1)
Quarter: 2022Q2

REPORT INFORMATION
  Report Type: Spontaneous
  Country: PL (occurrence: None)
  Receive Date: 20220512
  Receipt Date: 20220512
  Transmission Date: 20220721
  Serious: Yes (Hospitalization)
  Sender: FDA-Public Use
  Company Number: 2022A174215

PATIENT
  Age: 28 Year
  Sex: Male

DRUGS (1)
  1. OMEPRAZOLE [Suspect]
     Active Substance: OMEPRAZOLE
     Route: 065
     Dates: end: 20180316

REACTIONS (1)
  - Keratoacanthoma [Not Recovered/Not Resolved]

NARRATIVE: CASE EVENT DATE: 20180316
